FAERS Safety Report 16026030 (Version 2)
Quarter: 2019Q1

REPORT INFORMATION
  Report Type: Spontaneous
  Country: GB (occurrence: IE)
  Receive Date: 20190302
  Receipt Date: 20190311
  Transmission Date: 20190418
  Serious: Yes (Death, Hospitalization, Other)
  Sender: FDA-Public Use
  Company Number: GB-AUROBINDO-AUR-APL-2019-011198

PATIENT

DRUGS (5)
  1. IBUPROFEN. [Suspect]
     Active Substance: IBUPROFEN
     Indication: PRODUCT USED FOR UNKNOWN INDICATION
     Dosage: UNK
     Route: 065
     Dates: end: 20000421
  2. METHOTREXATE SODIUM. [Interacting]
     Active Substance: METHOTREXATE SODIUM
     Dosage: 2.5 MILLIGRAM, (DURING HER 8 DAY ADMISSION)
     Route: 048
     Dates: start: 200001
  3. METHOTREXATE SODIUM. [Interacting]
     Active Substance: METHOTREXATE SODIUM
     Indication: RHEUMATOID ARTHRITIS
     Dosage: 10 MILLIGRAM, EVERY WEEK (10 MG, WEEKLY)
     Route: 048
     Dates: start: 199701
  4. METHOTREXATE SODIUM. [Interacting]
     Active Substance: METHOTREXATE SODIUM
     Dosage: 10 MILLIGRAM, DAILY (10 MG, 1X/DAY)
     Route: 048
     Dates: start: 20000407
  5. METHOTREXATE SODIUM. [Interacting]
     Active Substance: METHOTREXATE SODIUM
     Dosage: 17.5 MILLIGRAM, EVERY WEEK
     Route: 048
     Dates: start: 199701

REACTIONS (17)
  - Toxicity to various agents [Fatal]
  - Pancytopenia [Fatal]
  - Gastrointestinal haemorrhage [Fatal]
  - Product dispensing error [Fatal]
  - Knee arthroplasty [Unknown]
  - Inflammation [Unknown]
  - Product prescribing error [Fatal]
  - Inappropriate schedule of product administration [Fatal]
  - Labelled drug-drug interaction medication error [Fatal]
  - Arthralgia [Unknown]
  - Condition aggravated [Unknown]
  - Intercepted product administration error [Fatal]
  - Phlebitis [Unknown]
  - Drug interaction [Fatal]
  - Mucosal inflammation [Unknown]
  - Overdose [Fatal]
  - Rash [Unknown]

NARRATIVE: CASE EVENT DATE: 200001
